FAERS Safety Report 21656402 (Version 1)
Quarter: 2022Q4

REPORT INFORMATION
  Report Type: Spontaneous
  Country: SE (occurrence: SE)
  Receive Date: 20221129
  Receipt Date: 20221129
  Transmission Date: 20230112
  Serious: Yes (Death, Life-Threatening, Hospitalization, Other)
  Sender: FDA-Public Use
  Company Number: SE-ABBOTT-11P-150-0842261-00

PATIENT
  Age: 59 Year
  Sex: Male

DRUGS (40)
  1. CLARITHROMYCIN [Suspect]
     Active Substance: CLARITHROMYCIN
     Indication: Product used for unknown indication
     Dosage: 1GRAM
     Route: 048
     Dates: start: 20110519, end: 20110530
  2. CLARITHROMYCIN [Suspect]
     Active Substance: CLARITHROMYCIN
     Dosage: 1 GRAM
     Route: 065
     Dates: start: 20110520
  3. LEVOFLOXACIN [Suspect]
     Active Substance: LEVOFLOXACIN
     Indication: Product used for unknown indication
     Dosage: TAKEN DAILY
     Route: 065
     Dates: start: 20110519, end: 20110530
  4. COLCHICINE [Suspect]
     Active Substance: COLCHICINE
     Indication: Gout
     Dosage: 2 GRAM, QD
     Route: 048
     Dates: start: 20110427, end: 20110530
  5. COLCHICINE [Suspect]
     Active Substance: COLCHICINE
     Indication: Pain in extremity
  6. COLCHICINE [Suspect]
     Active Substance: COLCHICINE
     Indication: Gouty arthritis
  7. COLCHICINE [Suspect]
     Active Substance: COLCHICINE
     Indication: Synovitis
  8. FLUCONAZOLE [Suspect]
     Active Substance: FLUCONAZOLE
     Indication: Product used for unknown indication
     Dosage: UNK
     Route: 065
     Dates: start: 201105, end: 201105
  9. AMIKIN [Concomitant]
     Active Substance: AMIKACIN SULFATE
     Indication: Product used for unknown indication
     Dosage: INJECTION DAILY
     Route: 065
     Dates: start: 201105, end: 20110530
  10. LYRICA [Concomitant]
     Active Substance: PREGABALIN
     Indication: Back pain
     Route: 065
  11. WARFARIN SODIUM [Concomitant]
     Active Substance: WARFARIN SODIUM
     Indication: Product used for unknown indication
     Route: 065
  12. PREDNISOLONE [Concomitant]
     Active Substance: PREDNISOLONE
     Indication: Product used for unknown indication
     Route: 065
  13. OXYCODONE HYDROCHLORIDE [Concomitant]
     Active Substance: OXYCODONE HYDROCHLORIDE
     Indication: Product used for unknown indication
     Route: 065
  14. SYMBICORT [Concomitant]
     Active Substance: BUDESONIDE\FORMOTEROL FUMARATE DIHYDRATE
     Indication: Product used for unknown indication
     Route: 065
  15. CITALOPRAM [Concomitant]
     Active Substance: CITALOPRAM HYDROBROMIDE
     Indication: Product used for unknown indication
     Route: 065
  16. ALFUZOSIN [Concomitant]
     Active Substance: ALFUZOSIN
     Indication: Product used for unknown indication
     Dosage: UNK
     Route: 065
  17. OMEPRAZOLE [Concomitant]
     Active Substance: OMEPRAZOLE
     Indication: Product used for unknown indication
     Route: 065
  18. OXYCODONE [Concomitant]
     Active Substance: OXYCODONE
     Indication: Product used for unknown indication
     Route: 065
  19. Folacin [Concomitant]
     Indication: Product used for unknown indication
     Route: 065
  20. ACETAMINOPHEN [Concomitant]
     Active Substance: ACETAMINOPHEN
     Indication: Product used for unknown indication
     Route: 065
  21. DIGOXIN [Concomitant]
     Active Substance: DIGOXIN
     Indication: Product used for unknown indication
     Route: 065
  22. BUMETANIDE [Concomitant]
     Active Substance: BUMETANIDE
     Indication: Product used for unknown indication
     Route: 065
  23. ALBUTEROL [Concomitant]
     Active Substance: ALBUTEROL
     Indication: Product used for unknown indication
     Route: 065
  24. ATROVENT [Concomitant]
     Active Substance: IPRATROPIUM BROMIDE
     Indication: Product used for unknown indication
     Dosage: UNK
     Route: 065
  25. Furix [Concomitant]
     Indication: Product used for unknown indication
     Route: 065
  26. HUMULIN R [Concomitant]
     Active Substance: INSULIN HUMAN
     Indication: Product used for unknown indication
     Route: 065
  27. KETOBEMIDONE HYDROCHLORIDE [Concomitant]
     Active Substance: KETOBEMIDONE HYDROCHLORIDE
     Indication: Product used for unknown indication
     Route: 065
  28. HUMALOG [Concomitant]
     Active Substance: INSULIN LISPRO
     Indication: Product used for unknown indication
     Route: 065
  29. SPIRONOLACTONE [Concomitant]
     Active Substance: SPIRONOLACTONE
     Indication: Product used for unknown indication
     Dosage: UNK
     Route: 065
  30. ACETYLCYSTEINE [Concomitant]
     Active Substance: ACETYLCYSTEINE
     Indication: Product used for unknown indication
     Route: 065
  31. CALCIUM CARBONATE\CHOLECALCIFEROL [Concomitant]
     Active Substance: CALCIUM CARBONATE\CHOLECALCIFEROL
     Indication: Product used for unknown indication
     Route: 065
  32. LEVOFLOXACIN [Concomitant]
     Active Substance: LEVOFLOXACIN
     Indication: Product used for unknown indication
     Route: 065
  33. SODIUM PICOSULFATE [Concomitant]
     Active Substance: SODIUM PICOSULFATE
     Indication: Product used for unknown indication
     Dosage: UNK
     Route: 048
  34. CANCIDAS [Concomitant]
     Active Substance: CASPOFUNGIN ACETATE
     Indication: Product used for unknown indication
     Route: 065
  35. MEROPENEM [Concomitant]
     Active Substance: MEROPENEM
     Indication: Product used for unknown indication
     Route: 065
  36. ACTIVE [Concomitant]
     Indication: Product used for unknown indication
     Route: 065
  37. FUROSEMIDE [Concomitant]
     Active Substance: FUROSEMIDE
     Indication: Product used for unknown indication
     Route: 065
  38. FILGRASTIM [Concomitant]
     Active Substance: FILGRASTIM
     Indication: White blood cell count decreased
     Route: 065
  39. ADRENALIN [Concomitant]
     Active Substance: EPINEPHRINE
     Indication: Product used for unknown indication
     Route: 065
  40. ALLOPURINOL [Concomitant]
     Active Substance: ALLOPURINOL
     Indication: Skin infection
     Route: 065

REACTIONS (20)
  - Agranulocytosis [Fatal]
  - Cardiac arrest [Fatal]
  - Diarrhoea [Fatal]
  - Sepsis [Fatal]
  - Myelosuppression [Fatal]
  - Multiple organ dysfunction syndrome [Fatal]
  - Drug interaction [Fatal]
  - Gout [Unknown]
  - C-reactive protein increased [Unknown]
  - Toxicity to various agents [Unknown]
  - Hypotension [Unknown]
  - Tachycardia [Unknown]
  - Pain in extremity [Unknown]
  - Skin ulcer [Unknown]
  - Cutaneous vasculitis [Unknown]
  - Mycobacterium chelonae infection [Unknown]
  - Cardiac arrest [Unknown]
  - Back pain [Unknown]
  - Dyspnoea [Unknown]
  - Blood creatinine increased [Unknown]

NARRATIVE: CASE EVENT DATE: 20110501
